FAERS Safety Report 5216871-5 (Version None)
Quarter: 2007Q1

REPORT INFORMATION
  Report Type: 
  Country: None (occurrence: None)
  Receive Date: 20070119
  Receipt Date: 20070105
  Transmission Date: 20070707
  Serious: Yes (Hospitalization)
  Sender: FDA-Public Use
  Company Number: 2007-152632-NL

PATIENT
  Age: 30 Year
  Sex: Female
  Weight: 52.6 kg

DRUGS (1)
  1. NUVARING [Suspect]
     Indication: MENSTRUATION IRREGULAR
     Dosage: VAGINAL, 3 WEEKS IN, 1 WEEK OUT
     Dates: start: 20040901, end: 20061101

REACTIONS (15)
  - ABDOMINAL PAIN [None]
  - ARRHYTHMIA [None]
  - BETA HAEMOLYTIC STREPTOCOCCAL INFECTION [None]
  - DIARRHOEA [None]
  - HYPOTENSION [None]
  - INFLUENZA LIKE ILLNESS [None]
  - MYALGIA [None]
  - NAUSEA [None]
  - RENAL FAILURE [None]
  - RESPIRATORY DISTRESS [None]
  - SEPTIC SHOCK [None]
  - TOXIC SHOCK SYNDROME [None]
  - VAGINAL DISCHARGE [None]
  - VAGINITIS BACTERIAL [None]
  - VOMITING [None]
